FAERS Safety Report 16630772 (Version 1)
Quarter: 2019Q3

REPORT INFORMATION
  Report Type: Other
  Country: IT (occurrence: IT)
  Receive Date: 20190725
  Receipt Date: 20190725
  Transmission Date: 20191004
  Serious: Yes (Other)
  Sender: FDA-Public Use
  Company Number: IT-MACLEODS PHARMACEUTICALS US LTD-MAC2019022200

PATIENT

DRUGS (6)
  1. SERTRALINE [Suspect]
     Active Substance: SERTRALINE HYDROCHLORIDE
     Indication: DRUG ABUSE
     Dosage: TABLET, 1 DOSAGE FORM, TOTAL
     Route: 048
     Dates: start: 20190626, end: 20190626
  2. CETRIZINE [Suspect]
     Active Substance: CETIRIZINE HYDROCHLORIDE
     Indication: DRUG ABUSE
     Dosage: TABLET, 1 DOSAGE FORM, TOTAL
     Route: 048
     Dates: start: 20190626, end: 20190626
  3. DELORAZEPAM [Suspect]
     Active Substance: DELORAZEPAM
     Indication: DRUG ABUSE
     Dosage: TABLET, 1 DOSAGE FORM, TOTAL
     Route: 048
     Dates: start: 20190626, end: 20190626
  4. RIFACOL [Suspect]
     Active Substance: RIFAXIMIN
     Indication: DRUG ABUSE
     Dosage: TABLET, 1 DOSAGE FORM, TOTAL
     Route: 048
     Dates: start: 20190626, end: 20190626
  5. PANTOPRAZOLE TABLET [Suspect]
     Active Substance: PANTOPRAZOLE
     Indication: DRUG ABUSE
     Dosage: TABLET,1 DOSAGE FORM, TOTAL
     Route: 048
     Dates: start: 20190626, end: 20190626
  6. DELTACORTENE [Suspect]
     Active Substance: PREDNISONE
     Indication: DRUG ABUSE
     Dosage: 5 MILLIGRAM TABLET, 1 DOSAGE FORM, TOTAL
     Route: 048
     Dates: start: 20190626, end: 20190626

REACTIONS (4)
  - Hypoaesthesia [Recovering/Resolving]
  - Poverty of speech [Recovering/Resolving]
  - Drug abuse [Recovering/Resolving]
  - Drug abuse [Recovering/Resolving]

NARRATIVE: CASE EVENT DATE: 20190626
